FAERS Safety Report 4891297-2 (Version None)
Quarter: 2006Q1

REPORT INFORMATION
  Report Type: 
  Country: None (occurrence: None)
  Receive Date: 20060123
  Receipt Date: 20051121
  Transmission Date: 20060701
  Serious: Yes (Other)
  Sender: FDA-Public Use
  Company Number: 2005S1000858

PATIENT
  Age: 3 Day
  Sex: Male

DRUGS (5)
  1. INOMAX [Suspect]
     Indication: LUNG DISORDER
     Dosage: 5 PPM; INH_GAS; INH;CONT INH
     Route: 055
     Dates: start: 20051116, end: 20051207
  2. INOMAX [Suspect]
     Indication: PROPHYLAXIS
     Dosage: 5 PPM; INH_GAS; INH;CONT INH
     Route: 055
     Dates: start: 20051116, end: 20051207
  3. FLUCLOXACILLIN (FLUCLOXACILLIN) [Concomitant]
  4. GENTAMICIN [Concomitant]
  5. MORPHINE [Concomitant]

REACTIONS (7)
  - DEVICE OCCLUSION [None]
  - NEONATAL RESPIRATORY ACIDOSIS [None]
  - NEONATAL RESPIRATORY DISTRESS SYNDROME [None]
  - PATENT DUCTUS ARTERIOSUS [None]
  - PLATELET COUNT DECREASED [None]
  - PREMATURE BABY [None]
  - PULMONARY HAEMORRHAGE [None]
